FAERS Safety Report 5379442-6 (Version None)
Quarter: 2007Q3

REPORT INFORMATION
  Report Type: 
  Country: None (occurrence: None)
  Receive Date: 20070705
  Receipt Date: 20070626
  Transmission Date: 20080115
  Serious: Yes (Death)
  Sender: FDA-Public Use
  Company Number: DE-JNJFOC-20070601664

PATIENT
  Age: 66 Year
  Sex: Female
  Weight: 60 kg

DRUGS (12)
  1. REMICADE [Suspect]
     Indication: RHEUMATOID ARTHRITIS
     Dosage: 3 INFUSIONS TOTAL
     Route: 042
  2. NEXIUM [Concomitant]
  3. LEVOTHYROXINE SODIUM [Concomitant]
  4. OSYROL [Concomitant]
  5. LASIX [Concomitant]
  6. FOSAMAX [Concomitant]
  7. DECORTIN [Concomitant]
  8. CONCOR [Concomitant]
  9. METHOTREXATE [Concomitant]
  10. FOLIC ACID [Concomitant]
  11. MARCUMAR [Concomitant]
  12. JARSIN [Concomitant]

REACTIONS (4)
  - EPIDERMOLYSIS BULLOSA [None]
  - FUNGAL SEPSIS [None]
  - MULTI-ORGAN FAILURE [None]
  - PNEUMOCYSTIS JIROVECI INFECTION [None]
